FAERS Safety Report 5414615-5 (Version None)
Quarter: 2007Q3

REPORT INFORMATION
  Report Type: 
  Country: None (occurrence: None)
  Receive Date: 20070813
  Receipt Date: 20070731
  Transmission Date: 20080115
  Serious: Yes (Hospitalization)
  Sender: FDA-Public Use
  Company Number: 2007US001610

PATIENT
  Age: 16 Year
  Sex: Male

DRUGS (7)
  1. TACROLIMUS(TACROLIMUS) FORMULATION UNKNOWN, 0.1MG/ML [Suspect]
     Dosage: 0.5 MG, WEEKLY,; 0.4 MG, WEEKLY,; 4 MG, WEEKLY,; 4 MG, TOTAL DOSE,; 5 MG, TOTAL DOSE,
     Dates: start: 20060701, end: 20061201
  2. TACROLIMUS(TACROLIMUS) FORMULATION UNKNOWN, 0.1MG/ML [Suspect]
     Dosage: 0.5 MG, WEEKLY,; 0.4 MG, WEEKLY,; 4 MG, WEEKLY,; 4 MG, TOTAL DOSE,; 5 MG, TOTAL DOSE,
     Dates: start: 20061201, end: 20070524
  3. TACROLIMUS(TACROLIMUS) FORMULATION UNKNOWN, 0.1MG/ML [Suspect]
     Dosage: 0.5 MG, WEEKLY,; 0.4 MG, WEEKLY,; 4 MG, WEEKLY,; 4 MG, TOTAL DOSE,; 5 MG, TOTAL DOSE,
     Dates: start: 20070524, end: 20070707
  4. TACROLIMUS(TACROLIMUS) FORMULATION UNKNOWN, 0.1MG/ML [Suspect]
     Dosage: 0.5 MG, WEEKLY,; 0.4 MG, WEEKLY,; 4 MG, WEEKLY,; 4 MG, TOTAL DOSE,; 5 MG, TOTAL DOSE,
     Dates: start: 20070712, end: 20070712
  5. TACROLIMUS(TACROLIMUS) FORMULATION UNKNOWN, 0.1MG/ML [Suspect]
     Dosage: 0.5 MG, WEEKLY,; 0.4 MG, WEEKLY,; 4 MG, WEEKLY,; 4 MG, TOTAL DOSE,; 5 MG, TOTAL DOSE,
     Dates: start: 20070719, end: 20070719
  6. OTHER ANTIVIRALS [Concomitant]
  7. PHENOBARBITAL (PHENOBARBITAL SODIUM) [Concomitant]

REACTIONS (6)
  - ACIDOSIS [None]
  - DRUG DISPENSING ERROR [None]
  - DRUG LEVEL INCREASED [None]
  - HYPERGLYCAEMIA [None]
  - HYPERKALAEMIA [None]
  - RENAL FAILURE ACUTE [None]
